FAERS Safety Report 4303777-9 (Version None)
Quarter: 2004Q1

REPORT INFORMATION
  Report Type: 
  Country: None (occurrence: None)
  Receive Date: 20040224
  Receipt Date: 20040224
  Transmission Date: 20041129
  Serious: Yes (Hospitalization)
  Sender: FDA-Public Use
  Company Number: None

PATIENT
  Age: 75 Year
  Sex: Male

DRUGS (2)
  1. MIDAZOLAM 1 MG/ML [Suspect]
     Indication: ANAESTHESIA
     Dates: start: 20030118, end: 20030118
  2. MEPERIDINE HCL [Suspect]
     Indication: ANAESTHESIA
     Dates: start: 20031118, end: 20031118

REACTIONS (2)
  - RASH ERYTHEMATOUS [None]
  - RASH PRURITIC [None]
